FAERS Safety Report 9094172 (Version 1)
Quarter: 2013Q1

REPORT INFORMATION
  Report Type: Spontaneous
  Country: US (occurrence: None)
  Receive Date: 20130122
  Receipt Date: 20130122
  Transmission Date: 20140127
  Serious: Yes (Death)
  Sender: FDA-Public Use
  Company Number: 2013POI058000021

PATIENT
  Age: 40 Year
  Sex: 0

DRUGS (4)
  1. OXYCODONE HCL [Suspect]
  2. METHADONE [Suspect]
  3. HEROIN [Suspect]
  4. DIPHENHYDRAMINE [Suspect]

REACTIONS (2)
  - Respiratory arrest [None]
  - Cardiac arrest [None]
